FAERS Safety Report 13322895 (Version 2)
Quarter: 2017Q2

REPORT INFORMATION
  Report Type: Report from Study
  Country: US (occurrence: US)
  Receive Date: 20170310
  Receipt Date: 20170402
  Transmission Date: 20170830
  Serious: No
  Sender: FDA-Public Use
  Company Number: US-AMGEN-USASP2017033002

PATIENT
  Age: 66 Year
  Sex: Female

DRUGS (1)
  1. ENBREL [Suspect]
     Active Substance: ETANERCEPT
     Indication: RHEUMATOID ARTHRITIS
     Dosage: 50 MG, QWK
     Route: 065
     Dates: start: 2017

REACTIONS (9)
  - Peripheral swelling [Unknown]
  - Pain in extremity [Unknown]
  - Increased tendency to bruise [Unknown]
  - Injection site bruising [Unknown]
  - Joint swelling [Unknown]
  - Gait disturbance [Unknown]
  - Synovial cyst [Unknown]
  - Nodule [Unknown]
  - Arthralgia [Unknown]

NARRATIVE: CASE EVENT DATE: 2017
